FAERS Safety Report 5513924-9 (Version None)
Quarter: 2007Q4

REPORT INFORMATION
  Report Type: 
  Country: None (occurrence: None)
  Receive Date: 20071106
  Receipt Date: 20061024
  Transmission Date: 20080405
  Serious: Yes (Other)
  Sender: FDA-Public Use
  Company Number: US200610004179

PATIENT
  Age: 57 Year
  Sex: Female

DRUGS (8)
  1. PROZAC [Suspect]
     Indication: DEPRESSION
     Dosage: 40 MG, DAILY (1/D), ORAL
     Route: 048
     Dates: start: 20020101, end: 20060601
  2. WELLBUTRIN [Concomitant]
  3. SYNTHROID [Concomitant]
  4. AEROBID [Concomitant]
  5. ALBUTEROL [Concomitant]
  6. EFFEXOR [Concomitant]
  7. BUSPAR /AUS/ (BUSPIRONE HYDROCHLORIDE) [Concomitant]
  8. BUSPIRONE HCL [Concomitant]

REACTIONS (2)
  - CONVULSION [None]
  - INSOMNIA [None]
